FAERS Safety Report 22110511 (Version 1)
Quarter: 2023Q1

REPORT INFORMATION
  Report Type: Spontaneous
  Country: US (occurrence: None)
  Receive Date: 20230317
  Receipt Date: 20230317
  Transmission Date: 20230418
  Serious: Yes (Life-Threatening, Hospitalization)
  Sender: FDA-Public Use
  Company Number: US-ROCHE-3310831

PATIENT
  Age: 66 Year
  Sex: Male

DRUGS (18)
  1. OBINUTUZUMAB [Suspect]
     Active Substance: OBINUTUZUMAB
     Indication: Non-small cell lung cancer metastatic
     Route: 042
     Dates: start: 20221004
  2. NAPTUMOMAB ESTAFENATOX [Suspect]
     Active Substance: NAPTUMOMAB ESTAFENATOX
     Indication: Non-small cell lung cancer metastatic
     Route: 042
     Dates: start: 20221017
  3. NAPTUMOMAB ESTAFENATOX [Suspect]
     Active Substance: NAPTUMOMAB ESTAFENATOX
     Route: 042
     Dates: start: 20230109
  4. TAXOTERE [Suspect]
     Active Substance: DOCETAXEL
     Indication: Non-small cell lung cancer metastatic
     Route: 042
     Dates: start: 20221021
  5. TAXOTERE [Suspect]
     Active Substance: DOCETAXEL
     Route: 042
     Dates: start: 20230113
  6. FUROSEMIDE [Suspect]
     Active Substance: FUROSEMIDE
     Indication: Hypervolaemia
     Route: 048
     Dates: start: 20230111
  7. ESCITALOPRAM [Concomitant]
     Active Substance: ESCITALOPRAM OXALATE
     Indication: Anxiety
  8. ESCITALOPRAM [Concomitant]
     Active Substance: ESCITALOPRAM OXALATE
     Indication: Depression
  9. DOCUSATE SODIUM [Concomitant]
     Active Substance: DOCUSATE SODIUM
     Indication: Constipation
  10. TRAMADOL [Concomitant]
     Active Substance: TRAMADOL
  11. RIVAROXABAN [Concomitant]
     Active Substance: RIVAROXABAN
     Indication: Hypertension
  12. ALBUTEROL [Concomitant]
     Active Substance: ALBUTEROL
     Indication: Chronic obstructive pulmonary disease
  13. OMEPRAZOLE [Concomitant]
     Active Substance: OMEPRAZOLE
     Indication: Gastrooesophageal reflux disease
  14. LACTULOSE [Concomitant]
     Active Substance: LACTULOSE
     Indication: Constipation
  15. DEXAMETHASONE [Concomitant]
     Active Substance: DEXAMETHASONE
     Indication: Nausea
  16. BENZONATATE [Concomitant]
     Active Substance: BENZONATATE
     Indication: Cough
  17. MELATONIN [Concomitant]
     Active Substance: MELATONIN
     Indication: Insomnia
  18. PEGFILGRASTIM [Concomitant]
     Active Substance: PEGFILGRASTIM
     Indication: Neutropenia

REACTIONS (18)
  - Acute respiratory failure [Unknown]
  - Sinus tachycardia [Unknown]
  - Sepsis [Unknown]
  - Hypotension [Unknown]
  - Chest discomfort [Unknown]
  - Malaise [Unknown]
  - Lung opacity [Unknown]
  - Atelectasis [Unknown]
  - Pleural effusion [Unknown]
  - Haemophilus infection [Not Recovered/Not Resolved]
  - Pneumonia [Not Recovered/Not Resolved]
  - Hypervolaemia [Not Recovered/Not Resolved]
  - Asthenia [Unknown]
  - Dyspnoea [Unknown]
  - Rhonchi [Unknown]
  - Pallor [Unknown]
  - Tissue infiltration [Unknown]
  - Acute kidney injury [Unknown]

NARRATIVE: CASE EVENT DATE: 20221028
